FAERS Safety Report 8882159 (Version 2)
Quarter: 2012Q4

REPORT INFORMATION
  Report Type: 
  Country: US (occurrence: US)
  Receive Date: 20121102
  Receipt Date: 20121207
  Transmission Date: 20130627
  Serious: No
  Sender: FDA-Public Use
  Company Number: US-B.I. PHARMACEUTICALS,INC./RIDGEFIELD-2012-BP-27044BP

PATIENT
  Sex: Female
  Weight: 50 kg

DRUGS (3)
  1. SPIRIVA [Suspect]
     Indication: CHRONIC OBSTRUCTIVE PULMONARY DISEASE
     Dosage: 18 mcg
     Route: 055
     Dates: start: 2008
  2. EXELON PATCH [Concomitant]
     Indication: DEMENTIA
     Route: 061
     Dates: start: 2008
  3. NAMENDA [Concomitant]
     Indication: DEMENTIA
     Route: 048
     Dates: start: 2008

REACTIONS (1)
  - Dementia [Not Recovered/Not Resolved]
